FAERS Safety Report 13237134 (Version 1)
Quarter: 2017Q1

REPORT INFORMATION
  Report Type: Spontaneous
  Country: US (occurrence: US)
  Receive Date: 20170215
  Receipt Date: 20170215
  Transmission Date: 20170428
  Serious: Yes (Other)
  Sender: FDA-Public Use
  Company Number: US-JNJFOC-20170211050

PATIENT
  Sex: Male
  Weight: 65.77 kg

DRUGS (7)
  1. OMEPRAZOLE. [Concomitant]
     Active Substance: OMEPRAZOLE
     Indication: ABDOMINAL DISCOMFORT
     Route: 065
  2. IRBESARTAN/HCT [Concomitant]
     Indication: HYPERTENSION
     Dosage: DOSE; 15-12 MG
     Route: 065
     Dates: start: 2016
  3. AMLODIPINE BESYLATE. [Concomitant]
     Active Substance: AMLODIPINE BESYLATE
     Indication: HYPERTENSION
     Route: 065
  4. SPORANOX [Suspect]
     Active Substance: ITRACONAZOLE
     Indication: RESPIRATORY TRACT INFECTION FUNGAL
     Dosage: TOTAL 20 MG PER DAY
     Route: 048
     Dates: start: 201701
  5. ROSUVASTATIN. [Concomitant]
     Active Substance: ROSUVASTATIN
     Route: 065
  6. CITALOPRAM HYDROBROMIDE. [Concomitant]
     Active Substance: CITALOPRAM HYDROBROMIDE
     Indication: BLOOD CHOLESTEROL ABNORMAL
     Route: 065
  7. CLOPIDOGREL SULFATE [Concomitant]
     Active Substance: CLOPIDOGREL BISULFATE
     Indication: HYPERTENSION
     Route: 065

REACTIONS (5)
  - Visual acuity reduced [Not Recovered/Not Resolved]
  - Skin abrasion [Unknown]
  - Loss of consciousness [Unknown]
  - Fall [Recovered/Resolved]
  - Diarrhoea [Not Recovered/Not Resolved]

NARRATIVE: CASE EVENT DATE: 2017
